FAERS Safety Report 11177142 (Version 4)
Quarter: 2016Q1

REPORT INFORMATION
  Report Type: Report from Study
  Country: US (occurrence: US)
  Receive Date: 20150610
  Receipt Date: 20160216
  Transmission Date: 20160525
  Serious: Yes (Other)
  Sender: FDA-Public Use
  Company Number: US-SANOFI-AVENTIS-2013SA010052

PATIENT
  Age: 61 Year
  Sex: Female
  Weight: 46.72 kg

DRUGS (15)
  1. VITAMIN D [Concomitant]
     Active Substance: CHOLECALCIFEROL
  2. LEVOTHYROXINE. [Concomitant]
     Active Substance: LEVOTHYROXINE
  3. SUMATRIPTAN. [Concomitant]
     Active Substance: SUMATRIPTAN
     Indication: MIGRAINE
     Dosage: AROUND 2006
  4. PRADAXA [Concomitant]
     Active Substance: DABIGATRAN ETEXILATE MESYLATE
  5. AUBAGIO [Suspect]
     Active Substance: TERIFLUNOMIDE
     Indication: MULTIPLE SCLEROSIS
     Route: 048
     Dates: start: 201209
  6. AUBAGIO [Suspect]
     Active Substance: TERIFLUNOMIDE
     Indication: MULTIPLE SCLEROSIS
     Route: 048
     Dates: start: 20150529
  7. AUBAGIO [Suspect]
     Active Substance: TERIFLUNOMIDE
     Indication: MULTIPLE SCLEROSIS
     Route: 048
     Dates: start: 2015
  8. FISH OIL [Concomitant]
     Active Substance: FISH OIL
  9. AUBAGIO [Suspect]
     Active Substance: TERIFLUNOMIDE
     Indication: MULTIPLE SCLEROSIS
     Route: 048
     Dates: start: 20121029
  10. AUBAGIO [Suspect]
     Active Substance: TERIFLUNOMIDE
     Indication: MULTIPLE SCLEROSIS
     Route: 048
     Dates: start: 2015
  11. CARISOPRODOL. [Concomitant]
     Active Substance: CARISOPRODOL
     Indication: SLEEP DISORDER
  12. DILTIAZEM [Concomitant]
     Active Substance: DILTIAZEM
  13. ADOL [Concomitant]
     Indication: PAIN
  14. CALCIUM [Concomitant]
     Active Substance: CALCIUM
  15. SIMVASTATIN. [Concomitant]
     Active Substance: SIMVASTATIN
     Indication: BLOOD CHOLESTEROL

REACTIONS (20)
  - Atrial fibrillation [Recovered/Resolved]
  - Hypoaesthesia [Not Recovered/Not Resolved]
  - Nausea [Not Recovered/Not Resolved]
  - Balance disorder [Unknown]
  - Hyperhidrosis [Not Recovered/Not Resolved]
  - Malaise [Unknown]
  - Paraesthesia [Not Recovered/Not Resolved]
  - Nasopharyngitis [Recovering/Resolving]
  - Asthenia [Recovering/Resolving]
  - Inappropriate schedule of drug administration [Unknown]
  - Fatigue [Not Recovered/Not Resolved]
  - Hyperthyroidism [Recovered/Resolved]
  - Infection [Unknown]
  - Stress [Unknown]
  - Central nervous system lesion [Unknown]
  - White blood cell count decreased [Not Recovered/Not Resolved]
  - Feeling cold [Not Recovered/Not Resolved]
  - Bone pain [Unknown]
  - Alopecia [Not Recovered/Not Resolved]
  - Unevaluable event [Unknown]

NARRATIVE: CASE EVENT DATE: 2013
